FAERS Safety Report 5792278-7 (Version None)
Quarter: 2008Q2

REPORT INFORMATION
  Report Type: 
  Country: None (occurrence: None)
  Receive Date: 20080626
  Receipt Date: 20080617
  Transmission Date: 20081010
  Serious: Yes (Hospitalization)
  Sender: FDA-Public Use
  Company Number: US-ELI_LILLY_AND_COMPANY-US200806003791

PATIENT
  Sex: Male

DRUGS (2)
  1. HUMULIN N [Suspect]
  2. NOVOLIN [Concomitant]

REACTIONS (1)
  - DIZZINESS [None]
